FAERS Safety Report 8282521-7 (Version None)
Quarter: 2012Q2

REPORT INFORMATION
  Report Type: 
  Country: None (occurrence: None)
  Receive Date: 20120413
  Receipt Date: 20120404
  Transmission Date: 20120825
  Serious: No
  Sender: FDA-Public Use
  Company Number: US-B.I. PHARMACEUTICALS,INC./RIDGEFIELD-2012-BP-06328BP

PATIENT
  Sex: Female

DRUGS (15)
  1. CARAFATE [Concomitant]
  2. PROTONIX [Concomitant]
     Indication: DYSPEPSIA
  3. AZITHROMYCIN [Concomitant]
     Indication: UPPER RESPIRATORY TRACT INFECTION
  4. VITAMIN D [Concomitant]
     Indication: SUPPLEMENTATION THERAPY
  5. AZOR [Concomitant]
     Indication: HYPERTENSION
  6. LASIX [Concomitant]
     Indication: HYPERTENSION
  7. CALCIUM CARBONATE [Concomitant]
     Indication: SUPPLEMENTATION THERAPY
  8. SPIRIVA [Suspect]
     Indication: CHRONIC OBSTRUCTIVE PULMONARY DISEASE
     Dosage: 18 MCG
     Route: 055
     Dates: start: 20120323, end: 20120401
  9. FLONASE [Concomitant]
     Indication: HYPERSENSITIVITY
  10. SYNTHROID [Concomitant]
     Indication: HYPOTHYROIDISM
  11. PROZAC [Concomitant]
     Indication: DEPRESSION
     Dosage: 40 MG
     Route: 048
  12. ATENOLOL [Concomitant]
     Indication: HYPERTENSION
  13. PENICILLIN [Concomitant]
     Indication: UPPER RESPIRATORY TRACT INFECTION
  14. BUSPAR [Concomitant]
     Indication: ANXIETY
     Dosage: 15 MG
     Route: 048
  15. CYMBALTA [Concomitant]
     Indication: DEPRESSION
     Dosage: 30 MG
     Route: 048

REACTIONS (3)
  - PRURITUS GENERALISED [None]
  - MIGRAINE [None]
  - DRY THROAT [None]
